FAERS Safety Report 9523660 (Version 1)
Quarter: 2013Q3

REPORT INFORMATION
  Report Type: Report from Study
  Country: BR (occurrence: BR)
  Receive Date: 20130913
  Receipt Date: 20130913
  Transmission Date: 20140515
  Serious: Yes (Other)
  Sender: FDA-Public Use
  Company Number: PHHY2013BR101791

PATIENT
  Sex: Male
  Weight: 86 kg

DRUGS (4)
  1. EXELON PATCH [Suspect]
     Indication: DEMENTIA
     Dosage: 4.6 MG, UNK
     Route: 062
     Dates: start: 201302
  2. EXELON PATCH [Suspect]
     Indication: DEMENTIA ALZHEIMER^S TYPE
     Dosage: 9.5 MG, UNK
     Route: 062
     Dates: start: 201303
  3. EXELON PATCH [Suspect]
     Dosage: 13.3 MG, UNK
     Route: 062
     Dates: start: 201304
  4. CYMBALTA [Concomitant]
     Dosage: UNK UKN, UNK
     Dates: start: 201210

REACTIONS (3)
  - Diabetes mellitus [Unknown]
  - Emotional distress [Unknown]
  - Memory impairment [Unknown]
